FAERS Safety Report 20804415 (Version 1)
Quarter: 2022Q2

REPORT INFORMATION
  Report Type: Spontaneous
  Country: US (occurrence: US)
  Receive Date: 20220509
  Receipt Date: 20220509
  Transmission Date: 20220721
  Serious: No
  Sender: FDA-Public Use
  Company Number: US-BEH-2022144877

PATIENT
  Age: 13 Year
  Sex: Female

DRUGS (2)
  1. BERINERT [Suspect]
     Active Substance: HUMAN C1-ESTERASE INHIBITOR
     Dosage: 900 INTERNATIONAL UNIT, PRN
     Route: 042
     Dates: start: 202204
  2. BERINERT [Suspect]
     Active Substance: HUMAN C1-ESTERASE INHIBITOR
     Dosage: 900 INTERNATIONAL UNIT, PRN
     Route: 042
     Dates: start: 202204

REACTIONS (2)
  - Injection site extravasation [Unknown]
  - Injection site irritation [Unknown]
